FAERS Safety Report 6906660-5 (Version None)
Quarter: 2010Q3

REPORT INFORMATION
  Report Type: 
  Country: None (occurrence: None)
  Receive Date: 20100804
  Receipt Date: 20100726
  Transmission Date: 20110219
  Serious: Yes (Other)
  Sender: FDA-Public Use
  Company Number: DE-PFIZER INC-2010093818

PATIENT
  Age: 65 Year

DRUGS (1)
  1. SORTIS [Suspect]
     Dosage: 40 MG/DAY
     Route: 048

REACTIONS (1)
  - BLOOD TEST ABNORMAL [None]
